FAERS Safety Report 14438608 (Version 3)
Quarter: 2018Q1

REPORT INFORMATION
  Report Type: Spontaneous
  Country: US (occurrence: US)
  Receive Date: 20180125
  Receipt Date: 20180308
  Transmission Date: 20180509
  Serious: No
  Sender: FDA-Public Use
  Company Number: US-MERZ NORTH AMERICA, INC.-18MRZ-00038

PATIENT
  Sex: Female
  Weight: 81.72 kg

DRUGS (3)
  1. XEOMIN [Suspect]
     Active Substance: INCOBOTULINUMTOXINA
     Indication: SKIN COSMETIC PROCEDURE
  2. XEOMIN [Suspect]
     Active Substance: INCOBOTULINUMTOXINA
     Indication: SKIN WRINKLING
  3. XEOMIN [Suspect]
     Active Substance: INCOBOTULINUMTOXINA
     Indication: SKIN WRINKLING
     Dosage: 48 TOTAL UNITS: CORRUGATORS 16 UNITS, PROCERUS 4 UNITS, FRONTALIS 8 UNITS, AND CROW^S FEET 20 UNITS
     Route: 030
     Dates: start: 20171106, end: 20171106

REACTIONS (1)
  - Drug ineffective [Unknown]
